FAERS Safety Report 6743163-5 (Version None)
Quarter: 2010Q2

REPORT INFORMATION
  Report Type: 
  Country: None (occurrence: None)
  Receive Date: 20100527
  Receipt Date: 20090821
  Transmission Date: 20101027
  Serious: Yes (Other)
  Sender: FDA-Public Use
  Company Number: CN-ASTRAZENECA-2009SE09265

PATIENT
  Sex: Female

DRUGS (3)
  1. IRESSA [Suspect]
     Indication: NON-SMALL CELL LUNG CANCER
     Route: 048
  2. IRESSA [Suspect]
     Dosage: AT NORMAL DOSAGE
     Route: 048
  3. CHINESE MEDICINE [Concomitant]
     Route: 065

REACTIONS (2)
  - MENTAL DISORDER [None]
  - OVERDOSE [None]
